FAERS Safety Report 14175578 (Version 1)
Quarter: 2017Q4

REPORT INFORMATION
  Report Type: Spontaneous
  Country: US (occurrence: US)
  Receive Date: 20171109
  Receipt Date: 20171109
  Transmission Date: 20180321
  Serious: No
  Sender: FDA-Public Use
  Company Number: US-ALLERGAN-1711134US

PATIENT
  Age: 76 Year
  Sex: Female

DRUGS (3)
  1. COMBIGAN [Suspect]
     Active Substance: BRIMONIDINE TARTRATE\TIMOLOL MALEATE
     Indication: GLAUCOMA
     Dosage: 1 GTT, BID
     Route: 047
     Dates: start: 201409
  2. LUMIGAN [Concomitant]
     Active Substance: BIMATOPROST
     Indication: GLAUCOMA
     Dosage: 1 GTT, QHS
     Route: 047
  3. AZOPT [Concomitant]
     Active Substance: BRINZOLAMIDE
     Indication: GLAUCOMA
     Dosage: 1 GTT, TID
     Route: 047

REACTIONS (4)
  - Vision blurred [Recovered/Resolved]
  - Heart rate increased [Recovered/Resolved]
  - Product storage error [Unknown]
  - Gait disturbance [Recovered/Resolved]
